FAERS Safety Report 16708759 (Version 2)
Quarter: 2019Q3

REPORT INFORMATION
  Report Type: Spontaneous
  Country: ZA (occurrence: ZA)
  Receive Date: 20190816
  Receipt Date: 20190926
  Transmission Date: 20191004
  Serious: Yes (Hospitalization, Other)
  Sender: FDA-Public Use
  Company Number: ZA-CIPLA LTD.-2019ZA05698

PATIENT

DRUGS (6)
  1. EFAVIRENZ. [Suspect]
     Active Substance: EFAVIRENZ
     Indication: HIV INFECTION
     Dosage: 650 MILLIGRAM
     Route: 065
  2. STAVUDINE. [Concomitant]
     Active Substance: STAVUDINE
     Indication: HIV INFECTION
  3. LAMIVUDINE. [Concomitant]
     Active Substance: LAMIVUDINE
     Indication: PULMONARY TUBERCULOSIS
     Dosage: UNK
     Route: 065
  4. STAVUDINE. [Concomitant]
     Active Substance: STAVUDINE
     Indication: PULMONARY TUBERCULOSIS
     Dosage: UNK
     Route: 065
  5. EFAVIRENZ. [Suspect]
     Active Substance: EFAVIRENZ
     Indication: PULMONARY TUBERCULOSIS
     Dosage: UNK
     Route: 065
  6. LAMIVUDINE. [Concomitant]
     Active Substance: LAMIVUDINE
     Indication: HIV INFECTION

REACTIONS (8)
  - Dysarthria [Recovered/Resolved]
  - Neurotoxicity [Unknown]
  - Developmental regression [Unknown]
  - Generalised tonic-clonic seizure [Unknown]
  - Somnolence [Recovered/Resolved]
  - Ataxia [Recovered/Resolved]
  - Drug level increased [Recovered/Resolved]
  - Incorrect dose administered [Unknown]
